FAERS Safety Report 18070107 (Version 2)
Quarter: 2020Q3

REPORT INFORMATION
  Report Type: Spontaneous
  Country: NL (occurrence: NL)
  Receive Date: 20200727
  Receipt Date: 20200804
  Transmission Date: 20201103
  Serious: Yes (Other)
  Sender: FDA-Public Use
  Company Number: NL-AUROBINDO-AUR-APL-2020-036491

PATIENT
  Sex: Male
  Weight: 100 kg

DRUGS (1)
  1. QUETIAPINE AUROBINDO RETARD 50 MG PROLONGED RELEASE TABLETS [Suspect]
     Active Substance: QUETIAPINE FUMARATE
     Indication: BIPOLAR DISORDER
     Dosage: 50 MILLIGRAM, TWO TIMES A DAY
     Route: 065
     Dates: start: 20200701, end: 20200707

REACTIONS (2)
  - Arrhythmia [Recovered/Resolved]
  - Therapeutic response unexpected [Unknown]
